FAERS Safety Report 9376204 (Version 2)
Quarter: 2013Q3

REPORT INFORMATION
  Report Type: Spontaneous
  Country: ES (occurrence: ES)
  Receive Date: 20130701
  Receipt Date: 20130703
  Transmission Date: 20140515
  Serious: Yes (Other)
  Sender: FDA-Public Use
  Company Number: ES-009507513-1306ESP012711

PATIENT
  Age: 35 Year
  Sex: Female

DRUGS (1)
  1. TRYPTIZOL [Suspect]
     Indication: PRODUCT USED FOR UNKNOWN INDICATION
     Dosage: 75 MG, QD
     Route: 048
     Dates: start: 20130423

REACTIONS (2)
  - Psychomotor hyperactivity [Unknown]
  - Incorrect dose administered [Unknown]
